FAERS Safety Report 19713029 (Version 1)
Quarter: 2021Q3

REPORT INFORMATION
  Report Type: Spontaneous
  Country: US (occurrence: US)
  Receive Date: 20210816
  Receipt Date: 20210816
  Transmission Date: 20211014
  Serious: No
  Sender: FDA-Public Use
  Company Number: None

PATIENT
  Sex: Female

DRUGS (3)
  1. HUMIRA [Suspect]
     Active Substance: ADALIMUMAB
     Indication: CROHN^S DISEASE
     Dosage: ?          OTHER DOSE:INJECT 4 PENS;OTHER FREQUENCY:ON DAY 1;?
     Route: 058
     Dates: start: 202108
  2. HUMIRA [Suspect]
     Active Substance: ADALIMUMAB
     Dosage: ?          OTHER DOSE:2 PENS;OTHER FREQUENCY:2 WKS LAT ON DA 15;?
  3. HUMIRA [Suspect]
     Active Substance: ADALIMUMAB
     Dosage: ?          OTHER DOSE:1 PEN;?

REACTIONS (10)
  - Anxiety [None]
  - Malaise [None]
  - Nausea [None]
  - Arthralgia [None]
  - Abdominal distension [None]
  - Insomnia [None]
  - Diarrhoea [None]
  - Depressed mood [None]
  - Asthenia [None]
  - Haematochezia [None]
